FAERS Safety Report 11053334 (Version 1)
Quarter: 2015Q2

REPORT INFORMATION
  Report Type: Spontaneous
  Country: US (occurrence: US)
  Receive Date: 20150421
  Receipt Date: 20150421
  Transmission Date: 20150821
  Serious: Yes (Hospitalization)
  Sender: FDA-Public Use
  Company Number: US-B.I. PHARMACEUTICALS,INC./RIDGEFIELD-2015-BI-20255BP

PATIENT
  Sex: Male
  Weight: 72.57 kg

DRUGS (2)
  1. COMBIVENT [Suspect]
     Active Substance: ALBUTEROL SULFATE\IPRATROPIUM BROMIDE
     Indication: NOCTURNAL DYSPNOEA
     Dosage: 2 PUF
     Route: 055
     Dates: start: 2008
  2. APRAZOLAM [Concomitant]
     Indication: DEPRESSION
     Route: 048

REACTIONS (4)
  - Polyarthritis [Not Recovered/Not Resolved]
  - Off label use [Unknown]
  - Myocardial infarction [Recovered/Resolved with Sequelae]
  - Visual acuity reduced [Not Recovered/Not Resolved]

NARRATIVE: CASE EVENT DATE: 2008
